FAERS Safety Report 20760039 (Version 1)
Quarter: 2022Q2

REPORT INFORMATION
  Report Type: Spontaneous
  Country: US (occurrence: US)
  Receive Date: 20220427
  Receipt Date: 20220427
  Transmission Date: 20220721
  Serious: No
  Sender: FDA-Public Use
  Company Number: US-ENDO PHARMACEUTICALS INC-2022-002444

PATIENT
  Age: 4 Decade
  Sex: Female
  Weight: 61.224 kg

DRUGS (1)
  1. QWO [Suspect]
     Active Substance: COLLAGENASE CLOSTRIDIUM HISTOLYTICUM-AAES
     Indication: Cellulite
     Dosage: UNK UNKNOWN, UNKNOWN (TREATMENT ONE)
     Route: 058
     Dates: start: 2022

REACTIONS (1)
  - Injection site atrophy [Unknown]

NARRATIVE: CASE EVENT DATE: 20220101
